FAERS Safety Report 5189566-4 (Version None)
Quarter: 2006Q4

REPORT INFORMATION
  Report Type: 
  Country: None (occurrence: None)
  Receive Date: 20061221
  Receipt Date: 20060605
  Transmission Date: 20070319
  Serious: No
  Sender: FDA-Public Use
  Company Number: US-AMGEN-KDL181859

PATIENT
  Sex: Female
  Weight: 68.1 kg

DRUGS (4)
  1. ENBREL [Suspect]
     Indication: RHEUMATOID ARTHRITIS
     Dates: start: 20040101, end: 20060417
  2. METHOTREXATE [Concomitant]
     Route: 048
  3. PREDNISONE TAB [Concomitant]
  4. MOBIC [Concomitant]

REACTIONS (2)
  - LYMPHOMA [None]
  - SQUAMOUS CELL CARCINOMA OF SKIN [None]
